FAERS Safety Report 14341042 (Version 3)
Quarter: 2018Q2

REPORT INFORMATION
  Report Type: Report from Study
  Country: None (occurrence: US)
  Receive Date: 20180102
  Receipt Date: 20180417
  Transmission Date: 20180711
  Serious: Yes (Hospitalization)
  Sender: FDA-Public Use
  Company Number: US-ABBVIE-17K-163-1935894-00

PATIENT
  Age: 22 Year
  Sex: Female

DRUGS (6)
  1. MOTRIN [Suspect]
     Active Substance: IBUPROFEN
     Indication: PRODUCT USED FOR UNKNOWN INDICATION
     Route: 065
     Dates: start: 2017, end: 2017
  2. HUMIRA [Suspect]
     Active Substance: ADALIMUMAB
     Dosage: DAY15
     Route: 058
     Dates: start: 20170415, end: 20170415
  3. HUMIRA [Suspect]
     Active Substance: ADALIMUMAB
     Route: 058
     Dates: start: 201803
  4. VITAMIN B12 [Concomitant]
     Active Substance: CYANOCOBALAMIN
     Indication: PRODUCT USED FOR UNKNOWN INDICATION
  5. HUMIRA [Suspect]
     Active Substance: ADALIMUMAB
     Dosage: DAY29
     Route: 058
     Dates: start: 20170429, end: 20171215
  6. HUMIRA [Suspect]
     Active Substance: ADALIMUMAB
     Indication: CROHN^S DISEASE
     Dosage: DAY 1
     Route: 058
     Dates: start: 20170401, end: 20170401

REACTIONS (28)
  - Toothache [Unknown]
  - Intestinal obstruction [Unknown]
  - Abdominal adhesions [Unknown]
  - Drug effect decreased [Unknown]
  - Urinary tract infection [Recovered/Resolved]
  - Flank pain [Unknown]
  - Fatigue [Recovering/Resolving]
  - Abdominal pain [Recovered/Resolved]
  - Injection site erythema [Recovered/Resolved]
  - Rectal haemorrhage [Recovered/Resolved]
  - Biliary colic [Unknown]
  - Injection site pruritus [Recovered/Resolved]
  - Constipation [Recovered/Resolved]
  - Abdominal distension [Unknown]
  - Insomnia [Recovered/Resolved]
  - Injection site urticaria [Recovered/Resolved]
  - Nausea [Not Recovered/Not Resolved]
  - Injection site rash [Recovered/Resolved]
  - Gastrointestinal inflammation [Unknown]
  - Vomiting [Not Recovered/Not Resolved]
  - Injection site papule [Recovered/Resolved]
  - Influenza [Unknown]
  - Tooth impacted [Unknown]
  - Haematochezia [Recovered/Resolved]
  - Diarrhoea [Recovering/Resolving]
  - Crohn^s disease [Unknown]
  - Abdominal pain upper [Unknown]
  - Decreased appetite [Recovering/Resolving]

NARRATIVE: CASE EVENT DATE: 2017
